FAERS Safety Report 17049770 (Version 1)
Quarter: 2019Q4

REPORT INFORMATION
  Report Type: Spontaneous
  Country: US (occurrence: US)
  Receive Date: 20191119
  Receipt Date: 20191119
  Transmission Date: 20200122
  Serious: No
  Sender: FDA-Public Use
  Company Number: NVSC2019US040619

PATIENT
  Sex: Male

DRUGS (2)
  1. MEKINIST [Suspect]
     Active Substance: TRAMETINIB DIMETHYL SULFOXIDE
     Indication: LANGERHANS^ CELL HISTIOCYTOSIS
  2. MEKINIST [Suspect]
     Active Substance: TRAMETINIB DIMETHYL SULFOXIDE
     Indication: MALIGNANT MAST CELL NEOPLASM
     Dosage: 1 MG, QD
     Route: 048
     Dates: start: 20190816

REACTIONS (2)
  - Product use in unapproved indication [Unknown]
  - Visual impairment [Unknown]
